FAERS Safety Report 21952082 (Version 1)
Quarter: 2023Q1

REPORT INFORMATION
  Report Type: Spontaneous
  Country: NL (occurrence: NL)
  Receive Date: 20230203
  Receipt Date: 20230203
  Transmission Date: 20230418
  Serious: Yes (Other)
  Sender: FDA-Public Use
  Company Number: None

PATIENT
  Sex: Male
  Weight: 91.5 kg

DRUGS (20)
  1. ANIDULAFUNGIN [Suspect]
     Active Substance: ANIDULAFUNGIN
     Dosage: ONE TIME ONLY 200MG
     Dates: start: 20140227
  2. ANIDULAFUNGIN [Suspect]
     Active Substance: ANIDULAFUNGIN
     Dosage: AFTERWARDS ONCE A DAY 100MG
     Route: 042
     Dates: start: 20140228
  3. GLARGINE BIOCON [Concomitant]
     Dosage: INJECTIEVLOEISTOF, 100 EENHEDEN/ML (EENHEDEN PER MILLILITER)
  4. DEXAMETHASONE [Concomitant]
     Active Substance: DEXAMETHASONE
     Dosage: 4 MG
  5. NEOMYCIN/POLYMYXIN B [Concomitant]
     Dosage: 125 MG (MILLIGRAM)/500000 EENHEDEN
  6. CALCIUM POLYSTYRENE SULFONATE [Concomitant]
     Active Substance: CALCIUM POLYSTYRENE SULFONATE
     Dosage: ZAKJE (POEDER), 1000 MG/G (MILLIGRAM PER GRAM)
  7. NOVORAPID [Concomitant]
     Active Substance: INSULIN ASPART
     Dosage: INJECTIEVLOEISTOF, 100 EENHEDEN/ML (EENHEDEN PER MILLILITER)
  8. AMPHOTERICIN B [Concomitant]
     Active Substance: AMPHOTERICIN B
     Dosage: SUSPENSIE, 100 MG/ML (MILLIGRAM PER MILLILITER)
  9. CIPROFLOXACIN [Concomitant]
     Active Substance: CIPROFLOXACIN
     Dosage: 500 MG
  10. PREDNISOLONE [Concomitant]
     Active Substance: PREDNISOLONE
     Dosage: POEDER INJECTIEVLOEISTOF, 25 MG (MILLIGRAM)
  11. PANTOPRAZOLE SODIUM [Concomitant]
     Active Substance: PANTOPRAZOLE SODIUM
     Dosage: MAAGSAPRESISTENTE TABLET, 40 MG (MILLIGRAM)
  12. DEXTRAN 70/HYPROMELLOSE [Concomitant]
     Dosage: OOGDRUPPELS, 1/3 MG/ML (MILLIGRAM PER MILLILITER)
  13. NADROPARIN [Concomitant]
     Active Substance: NADROPARIN
     Dosage: 15200IE
  14. BUMETANIDE [Concomitant]
     Active Substance: BUMETANIDE
     Dosage: 1 MG
  15. PENICILLIN G [Concomitant]
     Active Substance: PENICILLIN G
     Dosage: POEDER INJECTIEVLOEISTOF, 1 ME
  16. APREPITANT [Concomitant]
     Active Substance: APREPITANT
     Dosage: 80 MG
  17. SOTALOL [Concomitant]
     Active Substance: SOTALOL
     Dosage: 40 MG
  18. CARBOMER [Concomitant]
     Active Substance: CARBOMER
     Dosage: OOGGEL, 2 MG/G (MILLIGRAM PER GRAM)
  19. PHYTONADIONE [Concomitant]
     Active Substance: PHYTONADIONE
     Dosage: DRANK, 10 MG/ML (MILLIGRAM PER MILLILITER)
  20. PREDNISOLONE [Concomitant]
     Active Substance: PREDNISOLONE
     Dosage: UNK

REACTIONS (1)
  - Hypothermia [Recovered/Resolved]
